FAERS Safety Report 23052496 (Version 5)
Quarter: 2024Q4

REPORT INFORMATION
  Report Type: Report from Study
  Country: BE (occurrence: BE)
  Receive Date: 20231011
  Receipt Date: 20241128
  Transmission Date: 20250114
  Serious: No
  Sender: ROCHE
  Company Number: BE-ROCHE-3433364

PATIENT
  Age: 42 Year
  Sex: Female
  Weight: 70.5 kg

DRUGS (15)
  1. OCRELIZUMAB [Suspect]
     Active Substance: OCRELIZUMAB
     Indication: Relapsing-remitting multiple sclerosis
     Route: 042
     Dates: start: 20200218, end: 20200303
  2. OCRELIZUMAB [Suspect]
     Active Substance: OCRELIZUMAB
     Route: 042
     Dates: start: 20230403, end: 20230403
  3. OCRELIZUMAB [Suspect]
     Active Substance: OCRELIZUMAB
     Route: 042
     Dates: start: 20220328, end: 20220328
  4. OCRELIZUMAB [Suspect]
     Active Substance: OCRELIZUMAB
     Route: 042
     Dates: start: 20210927, end: 20210927
  5. OCRELIZUMAB [Suspect]
     Active Substance: OCRELIZUMAB
     Route: 042
     Dates: start: 20200820, end: 20200820
  6. OCRELIZUMAB [Suspect]
     Active Substance: OCRELIZUMAB
     Route: 042
     Dates: start: 20200303, end: 20200303
  7. OCRELIZUMAB [Suspect]
     Active Substance: OCRELIZUMAB
     Route: 042
     Dates: start: 20210329, end: 20210329
  8. OCRELIZUMAB [Suspect]
     Active Substance: OCRELIZUMAB
     Route: 042
     Dates: start: 20220926, end: 20220926
  9. OCRELIZUMAB [Suspect]
     Active Substance: OCRELIZUMAB
     Route: 042
     Dates: start: 20231103, end: 20231103
  10. OCRELIZUMAB [Suspect]
     Active Substance: OCRELIZUMAB
     Route: 042
     Dates: start: 20240503, end: 20240503
  11. OCRELIZUMAB [Suspect]
     Active Substance: OCRELIZUMAB
     Route: 042
  12. HYDROCORTISONE [Concomitant]
     Active Substance: HYDROCORTISONE
     Dosage: ONCE BEFORE INFUSION
     Route: 042
     Dates: start: 20231103, end: 20231103
  13. CETIRIZINE [Concomitant]
     Active Substance: CETIRIZINE HYDROCHLORIDE
     Dosage: ONCE BEFORE INFUSION SUBSEQUENT DOSE 3-MAY-2024
     Route: 048
     Dates: start: 20231103, end: 20231103
  14. ACETAMINOPHEN [Concomitant]
     Active Substance: ACETAMINOPHEN
     Dosage: SUBSEQUENT DOSE 3-MAY-2024
     Route: 048
     Dates: start: 20231103, end: 20231103
  15. METHYLPREDNISOLONE [Concomitant]
     Active Substance: METHYLPREDNISOLONE
     Route: 042
     Dates: start: 20240503, end: 20240503

REACTIONS (2)
  - Tuberculosis [Recovering/Resolving]
  - Burnout syndrome [Unknown]

NARRATIVE: CASE EVENT DATE: 20230925
